FAERS Safety Report 8548435-X (Version None)
Quarter: 2012Q3

REPORT INFORMATION
  Report Type: 
  Country: None (occurrence: None)
  Receive Date: 20120719
  Receipt Date: 20120719
  Transmission Date: 20120928
  Serious: No
  Sender: FDA-Public Use
  Company Number: None

PATIENT
  Age: 55 Year
  Sex: Female

DRUGS (1)
  1. ARM + HAMMER COMPLETE CARE, TARTAR CONTROL, EXTRA WHITENING W/BAKING S [Suspect]

REACTIONS (3)
  - STOMATITIS [None]
  - CHEILITIS [None]
  - GLOSSITIS [None]
